FAERS Safety Report 21759719 (Version 13)
Quarter: 2023Q4

REPORT INFORMATION
  Report Type: Spontaneous
  Country: US (occurrence: US)
  Receive Date: 20221221
  Receipt Date: 20231019
  Transmission Date: 20240110
  Serious: Yes (Other)
  Sender: FDA-Public Use
  Company Number: US-BRISTOL-MYERS SQUIBB COMPANY-2022-104989

PATIENT
  Age: 79 Year
  Sex: Male

DRUGS (4)
  1. POMALYST [Suspect]
     Active Substance: POMALIDOMIDE
     Indication: Plasma cell myeloma
     Route: 048
     Dates: start: 20220802
  2. POMALYST [Suspect]
     Active Substance: POMALIDOMIDE
     Dosage: TAKE 1 CAPSULE WHOLE BY MOUTH WITH WATER, WITH OR WITHOUT FOOD, AT SAME TIME DAILY ON DAYS
     Route: 048
     Dates: start: 20220803
  3. POMALYST [Suspect]
     Active Substance: POMALIDOMIDE
     Dosage: FREQ: TAKE 1 CAPSULE BY MOUTH WHOLE WITH WATER, WITH OR WITHOUT FOOD, AT SAME TIME DAILY ON DAYS 1-2
     Route: 048
     Dates: start: 20220826
  4. POMALYST [Suspect]
     Active Substance: POMALIDOMIDE
     Dosage: TAKE 1 CAPSULE WHOLE BY MOUTH WITH WATER, WITH OR WITHOUT FOOD, AT SAME TIME DAILY ON DAYS 1-21 OF A
     Route: 048
     Dates: start: 20220802

REACTIONS (9)
  - Localised infection [Not Recovered/Not Resolved]
  - Nasopharyngitis [Recovering/Resolving]
  - Cough [Recovering/Resolving]
  - Upper respiratory tract infection [Recovered/Resolved]
  - Depression [Unknown]
  - White blood cell count decreased [Recovering/Resolving]
  - Red blood cell count decreased [Recovering/Resolving]
  - Mental disorder [Unknown]
  - Cancer pain [Unknown]
